FAERS Safety Report 16975379 (Version 1)
Quarter: 2019Q4

REPORT INFORMATION
  Report Type: Spontaneous
  Country: US (occurrence: US)
  Receive Date: 20190913
  Receipt Date: 20190913
  Transmission Date: 20200122
  Serious: Yes (Hospitalization)
  Sender: FDA-Public Use
  Company Number: None

PATIENT
  Age: 58 Year
  Sex: Female

DRUGS (1)
  1. VERZENIO [Suspect]
     Active Substance: ABEMACICLIB
     Indication: BREAST CANCER
     Route: 048
     Dates: start: 20190825, end: 20190828

REACTIONS (5)
  - Nausea [None]
  - Dyspnoea [None]
  - Chills [None]
  - Headache [None]
  - Swollen tongue [None]

NARRATIVE: CASE EVENT DATE: 20190825
